FAERS Safety Report 8765870 (Version 2)
Quarter: 2013Q4

REPORT INFORMATION
  Report Type: Report from Study
  Country: JP (occurrence: JP)
  Receive Date: 20120904
  Receipt Date: 20131108
  Transmission Date: 20140711
  Serious: Yes (Hospitalization)
  Sender: FDA-Public Use
  Company Number: JP-009507513-2011SP023749

PATIENT
  Age: 65 Year
  Sex: Male
  Weight: 61 kg

DRUGS (10)
  1. REBETOL [Suspect]
     Indication: HEPATITIS C
     Dosage: 800 MG, QD
     Route: 048
     Dates: start: 20100921, end: 20110425
  2. REBETOL [Suspect]
     Dosage: 200MG, 400MG, QD
     Route: 048
     Dates: start: 20110426, end: 20110628
  3. FERON [Concomitant]
     Indication: HEPATITIS C
     Dosage: 6 MILLION IU, QW
     Route: 042
     Dates: start: 20100921, end: 20100924
  4. FERON [Concomitant]
     Dosage: 6 MILLION IU, QW
     Route: 042
     Dates: start: 20100926, end: 20101008
  5. FERON [Concomitant]
     Dosage: 6 MILLION IU, QW
     Route: 042
     Dates: start: 20101012, end: 20101224
  6. FERON [Concomitant]
     Dosage: 3 MILLION IU, QW
     Route: 042
     Dates: start: 20101228, end: 20110630
  7. URSO [Concomitant]
     Indication: HEPATITIS C
     Dosage: 600 MG, QD, DIVIDED DOSE, FREQUENCY UNKNOWN
     Route: 048
     Dates: end: 20111123
  8. BLOPRESS [Concomitant]
     Indication: HYPERTENSION
     Dosage: 4 MG, QD, DIVIDED DOSE, FREQUENCY UNKNOWN
     Route: 048
  9. NORVASC OD [Concomitant]
     Indication: HYPERTENSION
     Dosage: 5 MG, QD, DIVIDED DOSE FREQUENCY UNKNOWN
     Route: 048
  10. AMARYL [Concomitant]
     Indication: DIABETES MELLITUS
     Dosage: 1 MG, QD, DOSE DIVIDED FREQUENCY UNKNOWN
     Route: 048
     Dates: end: 20110725

REACTIONS (4)
  - White blood cell count decreased [Recovered/Resolved]
  - Platelet count decreased [Recovered/Resolved]
  - Pyrexia [Recovered/Resolved]
  - Proteinuria [Recovered/Resolved]
